FAERS Safety Report 15598556 (Version 1)
Quarter: 2018Q4

REPORT INFORMATION
  Report Type: Spontaneous
  Country: US (occurrence: US)
  Receive Date: 20181108
  Receipt Date: 20181108
  Transmission Date: 20190205
  Serious: No
  Sender: FDA-Public Use
  Company Number: US-SA-2017SA049210

PATIENT
  Sex: Male

DRUGS (1)
  1. ACT DRY MOUTH ANTICAVITY FLUORIDE [Suspect]
     Active Substance: SODIUM FLUORIDE
     Dosage: UNK UNK,UNK
     Route: 065

REACTIONS (3)
  - Product physical issue [Unknown]
  - Skin laceration [Unknown]
  - Product use issue [Unknown]
